FAERS Safety Report 8755864 (Version 3)
Quarter: 2016Q3

REPORT INFORMATION
  Report Type: Spontaneous
  Country: US (occurrence: US)
  Receive Date: 20120827
  Receipt Date: 20160802
  Transmission Date: 20161109
  Serious: Yes (Hospitalization, Other)
  Sender: FDA-Public Use
  Company Number: US-009507513-1204USA04555

PATIENT
  Sex: Female
  Weight: 95.71 kg

DRUGS (11)
  1. FOSAMAX [Suspect]
     Active Substance: ALENDRONATE SODIUM
     Dosage: 35 MG, UNK
     Route: 048
     Dates: start: 200801
  2. PREDNISONE. [Concomitant]
     Active Substance: PREDNISONE
     Indication: LUNG TRANSPLANT
  3. METICORTEN [Concomitant]
     Active Substance: PREDNISONE
     Indication: IMMUNOSUPPRESSION
     Dosage: TO PRESENT
     Dates: start: 200407
  4. LOSARTAN POTASSIUM TABLETS [Concomitant]
     Active Substance: LOSARTAN POTASSIUM
     Indication: HYPERTENSION
     Dosage: TO PRESENT
     Route: 048
     Dates: start: 200407
  5. FOSAMAX [Suspect]
     Active Substance: ALENDRONATE SODIUM
     Indication: OSTEOPOROSIS
     Route: 048
  6. FOSAMAX [Suspect]
     Active Substance: ALENDRONATE SODIUM
     Dosage: 35 MG, QW
     Route: 048
  7. FOSAMAX [Suspect]
     Active Substance: ALENDRONATE SODIUM
     Indication: LUNG TRANSPLANT
     Dosage: 70 MG, UNK
     Route: 048
     Dates: start: 200410
  8. PRILOSEC [Concomitant]
     Active Substance: OMEPRAZOLE MAGNESIUM
     Dosage: TO PRESENT
     Dates: start: 200407
  9. AMLODIPINE [Concomitant]
     Active Substance: AMLODIPINE BESYLATE
     Indication: HYPERTENSION
     Dosage: TO PRESENT
     Route: 048
     Dates: start: 200407
  10. SIMVASTATIN. [Concomitant]
     Active Substance: SIMVASTATIN
     Indication: HYPERLIPIDAEMIA
     Dosage: TO PRESENT
     Route: 048
     Dates: start: 200407
  11. BENICAR [Concomitant]
     Active Substance: OLMESARTAN MEDOXOMIL
     Dosage: 20 MG, QD
     Dates: start: 200407

REACTIONS (36)
  - Cardiac murmur [Unknown]
  - Off label use [Unknown]
  - Stress fracture [Unknown]
  - Somnolence [Unknown]
  - Femur fracture [Unknown]
  - Drug level above therapeutic [Unknown]
  - Mammogram abnormal [Unknown]
  - Pain in jaw [Unknown]
  - Acute kidney injury [Unknown]
  - Diarrhoea [Recovered/Resolved]
  - Depression [Unknown]
  - Pneumonia [Unknown]
  - Thyroid disorder [Unknown]
  - Decreased appetite [Unknown]
  - Cough [Unknown]
  - Pathological fracture [Unknown]
  - Renal failure [Unknown]
  - Pulmonary fibrosis [Unknown]
  - Pleural effusion [Unknown]
  - Breath sounds abnormal [Unknown]
  - Acute kidney injury [Unknown]
  - Femur fracture [Recovered/Resolved with Sequelae]
  - Impaired healing [Recovering/Resolving]
  - Complications of transplanted lung [Unknown]
  - Insomnia [Unknown]
  - Acute kidney injury [Recovered/Resolved]
  - Dehydration [Unknown]
  - Bursitis [Unknown]
  - Nausea [Recovered/Resolved]
  - Gastrooesophageal reflux disease [Unknown]
  - Intramedullary rod insertion [Unknown]
  - Chronic kidney disease [Not Recovered/Not Resolved]
  - Sinusitis [Unknown]
  - Restless legs syndrome [Unknown]
  - Acrochordon [Unknown]
  - Headache [Recovered/Resolved]

NARRATIVE: CASE EVENT DATE: 200410
